FAERS Safety Report 8092827 (Version 5)
Quarter: 2014Q3

REPORT INFORMATION
  Report Type: Report from Study
  Country: JP (occurrence: JP)
  Receive Date: 20110816
  Receipt Date: 20140820
  Transmission Date: 20150326
  Serious: Yes (Other)
  Sender: FDA-Public Use
  Company Number: PHHY2011JP71667

PATIENT
  Age: 52 Year
  Sex: Female
  Weight: 52 kg

DRUGS (4)
  1. AFINITOR [Suspect]
     Active Substance: EVEROLIMUS
     Indication: METASTATIC RENAL CELL CARCINOMA
     Dosage: 10 MG, DAILY
     Route: 048
     Dates: start: 20101118
  2. OXYCONTIN [Concomitant]
     Active Substance: OXYCODONE HYDROCHLORIDE
     Dosage: 30 MG, PER DAY
     Route: 048
     Dates: start: 20101122
  3. ZOMETA [Suspect]
     Active Substance: ZOLEDRONIC ACID
     Indication: METASTASES TO BONE
     Dosage: 4 MG, EVERY FOUR WEEKS
     Route: 041
     Dates: start: 20100423, end: 20110603
  4. ZOMETA [Suspect]
     Active Substance: ZOLEDRONIC ACID
     Indication: RENAL CANCER

REACTIONS (12)
  - Erythema [Unknown]
  - Aspartate aminotransferase increased [Unknown]
  - Swelling [Unknown]
  - Malignant neoplasm progression [Unknown]
  - Skin disorder [Unknown]
  - Pyrexia [Unknown]
  - Cancer pain [Unknown]
  - C-reactive protein increased [Unknown]
  - Osteonecrosis of jaw [Recovered/Resolved]
  - Tumour lysis syndrome [Unknown]
  - Metastases to lung [Unknown]
  - Blood lactate dehydrogenase increased [Unknown]

NARRATIVE: CASE EVENT DATE: 20101121
